FAERS Safety Report 14952861 (Version 1)
Quarter: 2018Q2

REPORT INFORMATION
  Report Type: Spontaneous
  Country: US (occurrence: US)
  Receive Date: 20180530
  Receipt Date: 20180530
  Transmission Date: 20180711
  Serious: No
  Sender: FDA-Public Use
  Company Number: US-BIODELIVERY SCIENCES INTERNATIONAL-2018BDSI0161

PATIENT
  Age: 65 Year
  Sex: Female
  Weight: 87.17 kg

DRUGS (4)
  1. BUPRENORPHINE. [Suspect]
     Active Substance: BUPRENORPHINE
     Indication: PAIN
     Route: 002
     Dates: start: 20180412, end: 20180413
  2. INSULIN LISPRO [Concomitant]
     Active Substance: INSULIN LISPRO
     Indication: DIABETES MELLITUS
     Dosage: NOT  MORE THAN 6 UNITS/DAY
  3. TEMAZEPAM. [Concomitant]
     Active Substance: TEMAZEPAM
     Indication: INSOMNIA
     Route: 048
  4. ESOMEPRAZOLE MAGNESIUM. [Concomitant]
     Active Substance: ESOMEPRAZOLE MAGNESIUM
     Indication: GASTROOESOPHAGEAL REFLUX DISEASE
     Dosage: AS NEEDED
     Route: 048

REACTIONS (8)
  - Nausea [Recovered/Resolved]
  - Vomiting [Recovered/Resolved]
  - Visual brightness [Unknown]
  - Haematochezia [Not Recovered/Not Resolved]
  - Platelet count decreased [Not Recovered/Not Resolved]
  - Wrong technique in product usage process [Unknown]
  - Bronchitis [Not Recovered/Not Resolved]
  - Neuralgia [Recovered/Resolved]

NARRATIVE: CASE EVENT DATE: 20180412
